FAERS Safety Report 5367516-5 (Version None)
Quarter: 2007Q2

REPORT INFORMATION
  Report Type: 
  Country: None (occurrence: None)
  Receive Date: 20070622
  Receipt Date: 20070618
  Transmission Date: 20071010
  Serious: Yes (Congenital Anomaly, Other)
  Sender: FDA-Public Use
  Company Number: CA-BRISTOL-MYERS SQUIBB COMPANY-13817770

PATIENT
  Age: 35 Year
  Sex: Female
  Weight: 60 kg

DRUGS (6)
  1. IRBESARTAN [Suspect]
  2. ATORVASTATIN [Suspect]
  3. SIBUTRAMINE [Suspect]
  4. BROMPHENIRAMINE [Concomitant]
  5. IBUPROFEN [Concomitant]
  6. ALCOHOL [Concomitant]

REACTIONS (3)
  - ABORTION MISSED [None]
  - PREGNANCY [None]
  - TURNER'S SYNDROME [None]
